FAERS Safety Report 15258198 (Version 1)
Quarter: 2018Q3

REPORT INFORMATION
  Report Type: Spontaneous
  Country: DE (occurrence: DE)
  Receive Date: 20180809
  Receipt Date: 20180809
  Transmission Date: 20181010
  Serious: Yes (Other)
  Sender: FDA-Public Use
  Company Number: DE-TEVA-2018-DE-936578

PATIENT
  Age: 47 Year
  Sex: Female

DRUGS (2)
  1. SERTRALINE [Concomitant]
     Active Substance: SERTRALINE HYDROCHLORIDE
     Indication: BURNOUT SYNDROME
  2. CELECOXIB. [Suspect]
     Active Substance: CELECOXIB
     Indication: ARTHRALGIA
     Route: 065

REACTIONS (4)
  - Rash [Recovered/Resolved]
  - Rash generalised [Recovered/Resolved]
  - Hypersensitivity [Recovered/Resolved]
  - Dyspnoea [Recovered/Resolved]
